FAERS Safety Report 12342290 (Version 1)
Quarter: 2016Q2

REPORT INFORMATION
  Report Type: Report from Study
  Country: US (occurrence: US)
  Receive Date: 20160506
  Receipt Date: 20160506
  Transmission Date: 20160815
  Serious: Yes (Other)
  Sender: FDA-Public Use
  Company Number: US-BAYER-2016-084026

PATIENT

DRUGS (1)
  1. BETASERON [Suspect]
     Active Substance: INTERFERON BETA-1B
     Indication: RELAPSING-REMITTING MULTIPLE SCLEROSIS
     Dosage: UNK
     Route: 064
     Dates: start: 20000601, end: 20020601

REACTIONS (2)
  - Foetal exposure during pregnancy [None]
  - Talipes [Recovered/Resolved]

NARRATIVE: CASE EVENT DATE: 2003
